APPROVED DRUG PRODUCT: ZOLOFT
Active Ingredient: SERTRALINE HYDROCHLORIDE
Strength: EQ 50MG BASE
Dosage Form/Route: TABLET;ORAL
Application: N019839 | Product #001 | TE Code: AB
Applicant: VIATRIS SPECIALTY LLC
Approved: Dec 30, 1991 | RLD: Yes | RS: No | Type: RX